FAERS Safety Report 17932608 (Version 2)
Quarter: 2020Q3

REPORT INFORMATION
  Report Type: Report from Study
  Country: US (occurrence: US)
  Receive Date: 20200623
  Receipt Date: 20200805
  Transmission Date: 20201103
  Serious: No
  Sender: FDA-Public Use
  Company Number: NVSC2020US175696

PATIENT
  Sex: Female

DRUGS (3)
  1. LETROZOLE. [Suspect]
     Active Substance: LETROZOLE
     Route: 048
  2. PIQRAY [Suspect]
     Active Substance: ALPELISIB
     Indication: PRODUCT USED FOR UNKNOWN INDICATION
     Dosage: UNK
     Route: 048
  3. LETROZOLE. [Suspect]
     Active Substance: LETROZOLE
     Indication: PRODUCT USED FOR UNKNOWN INDICATION
     Dosage: UNK
     Route: 048

REACTIONS (14)
  - Inappropriate schedule of product administration [Unknown]
  - Lethargy [Unknown]
  - Diarrhoea [Unknown]
  - Dry mouth [Unknown]
  - Rash pruritic [Unknown]
  - Taste disorder [Unknown]
  - Asthenia [Recovered/Resolved with Sequelae]
  - Back pain [Unknown]
  - Stomatitis [Unknown]
  - Bone pain [Unknown]
  - Lip swelling [Unknown]
  - Dry skin [Unknown]
  - Gastrooesophageal reflux disease [Unknown]
  - Blood glucose increased [Unknown]
